FAERS Safety Report 13259697 (Version 1)
Quarter: 2017Q1

REPORT INFORMATION
  Report Type: Spontaneous
  Country: US (occurrence: US)
  Receive Date: 20170222
  Receipt Date: 20170222
  Transmission Date: 20170428
  Serious: Yes (Hospitalization)
  Sender: FDA-Public Use
  Company Number: US-OREXO US, INC.-ORE201702-000017

PATIENT
  Age: 53 Year
  Sex: Female

DRUGS (1)
  1. ZUBSOLV [Suspect]
     Active Substance: BUPRENORPHINE HYDROCHLORIDE\NALOXONE HYDROCHLORIDE
     Indication: DRUG DEPENDENCE
     Dosage: 5.7/1.4 MG
     Route: 060
     Dates: start: 201606, end: 201612

REACTIONS (4)
  - Loss of consciousness [Unknown]
  - Seizure [Unknown]
  - Amnesia [Unknown]
  - Monoplegia [Unknown]

NARRATIVE: CASE EVENT DATE: 201607
